FAERS Safety Report 4458964-6 (Version None)
Quarter: 2004Q3

REPORT INFORMATION
  Report Type: 
  Country: None (occurrence: None)
  Receive Date: 20040923
  Receipt Date: 20040923
  Transmission Date: 20050211
  Serious: Yes (Other)
  Sender: FDA-Public Use
  Company Number: None

PATIENT
  Age: 13 Year
  Sex: Male
  Weight: 59.8748 kg

DRUGS (3)
  1. ZOLOFT [Suspect]
     Indication: DEPRESSION
     Dosage: 25MG TO 50 MG BY MOUTH
     Route: 048
     Dates: start: 20040807, end: 20040908
  2. ZOLOFT [Suspect]
     Indication: RHEUMATOID ARTHRITIS
     Dosage: 25MG TO 50 MG BY MOUTH
     Route: 048
     Dates: start: 20040807, end: 20040908
  3. CELEBREX [Concomitant]

REACTIONS (7)
  - ANXIETY [None]
  - CRYING [None]
  - DIARRHOEA [None]
  - INSOMNIA [None]
  - NAUSEA [None]
  - WEIGHT DECREASED [None]
  - YAWNING [None]
